FAERS Safety Report 17143814 (Version 3)
Quarter: 2020Q1

REPORT INFORMATION
  Report Type: Report from Study
  Country: DE (occurrence: DE)
  Receive Date: 20191212
  Receipt Date: 20200324
  Transmission Date: 20200409
  Serious: Yes (Life-Threatening, Hospitalization, Other)
  Sender: FDA-Public Use
  Company Number: DE-SA-2019SA317683

PATIENT
  Age: 33 Year
  Sex: Male
  Weight: 65 kg

DRUGS (16)
  1. XYZAL [Concomitant]
     Active Substance: LEVOCETIRIZINE DIHYDROCHLORIDE
     Dosage: 5 MG IU
     Route: 048
     Dates: start: 20140829, end: 20190517
  2. CEFIXIME. [Concomitant]
     Active Substance: CEFIXIME
     Dosage: UNK UNK, UNK
     Route: 065
  3. IBUPROFEN. [Concomitant]
     Active Substance: IBUPROFEN
     Dosage: 600 MG IU
     Route: 048
     Dates: start: 20140831, end: 20190517
  4. ALEMTUZUMAB [Suspect]
     Active Substance: ALEMTUZUMAB
     Dosage: 12 MG
     Route: 041
     Dates: start: 20150909, end: 20150911
  5. PANTOZOL [Concomitant]
     Active Substance: PANTOPRAZOLE SODIUM
     Dosage: 40 MG
     Route: 065
     Dates: start: 20140901, end: 20190517
  6. REBIF [Concomitant]
     Active Substance: INTERFERON BETA-1A
     Dosage: UNK
     Route: 065
     Dates: start: 2007
  7. METHYLPREDNISOLONE. [Concomitant]
     Active Substance: METHYLPREDNISOLONE
     Dosage: 1000 MG
     Route: 065
     Dates: start: 20140901, end: 20190517
  8. ACICLOVIR [Concomitant]
     Active Substance: ACYCLOVIR
     Dosage: 40 IU
     Route: 058
     Dates: start: 20140901, end: 20190614
  9. URBASON [METHYLPREDNISOLONE] [Concomitant]
     Active Substance: METHYLPREDNISOLONE
     Dosage: 1 G
     Route: 042
  10. PANTOPRAZOLE [Concomitant]
     Active Substance: PANTOPRAZOLE
     Indication: GASTRIC DISORDER
     Dosage: 40 MG IU
     Route: 048
     Dates: start: 20191122
  11. ALEMTUZUMAB [Suspect]
     Active Substance: ALEMTUZUMAB
     Dosage: 12 MG
     Route: 041
     Dates: start: 20140901, end: 20140905
  12. ALEMTUZUMAB [Suspect]
     Active Substance: ALEMTUZUMAB
     Indication: MULTIPLE SCLEROSIS
     Dosage: 12 MG
     Route: 041
     Dates: start: 20190515, end: 20190517
  13. REBIF [Concomitant]
     Active Substance: INTERFERON BETA-1A
     Indication: LIVER FUNCTION TEST INCREASED
     Dosage: 44 UNK, Q3W
     Route: 058
     Dates: start: 20070101
  14. CLEXANE [Concomitant]
     Active Substance: ENOXAPARIN SODIUM
     Dosage: 40 IU
     Route: 058
     Dates: start: 20140901, end: 20190517
  15. COTRIM-RATIOPHARM SPECIFIC [Concomitant]
     Indication: ANTIBIOTIC THERAPY
     Dosage: 48 MG IU
     Route: 048
     Dates: start: 20191122
  16. SEVELAMER CARBONATE. [Concomitant]
     Active Substance: SEVELAMER CARBONATE
     Indication: HYPERPHOSPHATAEMIA
     Dosage: UNK IU
     Route: 048
     Dates: start: 20191122

REACTIONS (11)
  - Infusion related reaction [Recovered/Resolved]
  - Liver function test increased [Unknown]
  - Renal failure [Unknown]
  - Goodpasture^s syndrome [Not Recovered/Not Resolved]
  - Infection [Recovered/Resolved]
  - Pneumonia [Recovered/Resolved]
  - Sepsis [Recovered/Resolved]
  - Hypertension [Not Recovered/Not Resolved]
  - Blood creatinine increased [Unknown]
  - Hypovitaminosis [Not Recovered/Not Resolved]
  - Weight decreased [Not Recovered/Not Resolved]

NARRATIVE: CASE EVENT DATE: 2019
